FAERS Safety Report 15069567 (Version 1)
Quarter: 2018Q2

REPORT INFORMATION
  Report Type: Spontaneous
  Country: US (occurrence: US)
  Receive Date: 20180626
  Receipt Date: 20180626
  Transmission Date: 20180711
  Serious: No
  Sender: FDA-Public Use
  Company Number: US-AMGEN-USASP2011050198

PATIENT
  Sex: Female

DRUGS (1)
  1. NEULASTA [Suspect]
     Active Substance: PEGFILGRASTIM
     Indication: CHEMOTHERAPY
     Dosage: UNK UNK, Q3WK
     Dates: start: 2011

REACTIONS (3)
  - Bone pain [Not Recovered/Not Resolved]
  - Inappropriate schedule of drug administration [Unknown]
  - Transfusion [Unknown]

NARRATIVE: CASE EVENT DATE: 2011
